FAERS Safety Report 6516844-6 (Version None)
Quarter: 2009Q4

REPORT INFORMATION
  Report Type: 
  Country: None (occurrence: None)
  Receive Date: 20091223
  Receipt Date: 20091217
  Transmission Date: 20100525
  Serious: Yes (Death, Life-Threatening, Hospitalization)
  Sender: FDA-Public Use
  Company Number: PHHO2009ES13029

PATIENT
  Sex: Female
  Weight: 54.7 kg

DRUGS (7)
  1. AFINITOR [Suspect]
     Indication: METASTATIC RENAL CELL CARCINOMA
     Dosage: 10MG/DAY
     Route: 048
     Dates: start: 20090623, end: 20090728
  2. OMEPRAZOLE [Concomitant]
     Dosage: UNK
     Route: 048
  3. BROMAZEPAM [Concomitant]
     Indication: ANXIETY
     Dosage: UNK
  4. ATENOLOL [Concomitant]
     Indication: HYPERTENSION
     Dosage: UNK
  5. HYDROCHLOROTHIAZIDE W/IRBESARTAN [Concomitant]
     Indication: HYPERTENSION
     Dosage: UNK
  6. DOXAZOSIN MESYLATE [Concomitant]
     Indication: HYPERTENSION
     Dosage: UNK
     Route: 048
  7. SERTRALINE HCL [Concomitant]
     Indication: ANXIETY
     Dosage: UNK

REACTIONS (8)
  - ACUTE RESPIRATORY DISTRESS SYNDROME [None]
  - CARDIAC ENZYMES INCREASED [None]
  - CHEST PAIN [None]
  - DYSPNOEA [None]
  - GENERAL PHYSICAL HEALTH DETERIORATION [None]
  - LEFT VENTRICULAR HYPERTROPHY [None]
  - LUNG INFECTION [None]
  - PERICARDIAL EFFUSION [None]
